FAERS Safety Report 9660682 (Version 1)
Quarter: 2013Q4

REPORT INFORMATION
  Report Type: Spontaneous
  Country: US (occurrence: US)
  Receive Date: 20131031
  Receipt Date: 20131031
  Transmission Date: 20140711
  Serious: Yes (Other)
  Sender: FDA-Public Use
  Company Number: US-BAYER-2013-128854

PATIENT
  Age: 27 Year
  Sex: Female
  Weight: 51 kg

DRUGS (13)
  1. CIPROFLOXACIN BETAIN [Suspect]
     Indication: ENDOCARDITIS BACTERIAL
     Dosage: UNK
     Route: 042
  2. AMPICILLIN [Suspect]
     Indication: ENDOCARDITIS BACTERIAL
     Dosage: UNK
     Route: 042
  3. GENTAMICIN [Suspect]
     Indication: ENDOCARDITIS BACTERIAL
     Dosage: UNK
     Route: 042
  4. SULBACTAM [Suspect]
     Indication: ENDOCARDITIS BACTERIAL
     Dosage: UNK
     Route: 042
  5. VANCOMYCIN [Suspect]
     Indication: ENDOCARDITIS BACTERIAL
     Route: 042
  6. BETAMETHASONE [BETAMETHASONE] [Suspect]
     Indication: PROPHYLAXIS
     Route: 030
  7. PROPOFOL [Concomitant]
     Indication: GENERAL ANAESTHESIA
     Dosage: 2 MG/KG
  8. SUCCINYLCHOLINE CHLORIDE [Concomitant]
     Indication: GENERAL ANAESTHESIA
     Dosage: 1 MG/KG
  9. SEVOFLURANE [Concomitant]
     Indication: GENERAL ANAESTHESIA
     Dosage: END-TIDAL CONCENTRATIONS OF 0.6 TO 0.8%
     Route: 055
  10. MIDAZOLAM [Concomitant]
     Indication: GENERAL ANAESTHESIA
     Dosage: TOTAL OF 0.1 MG/KG
  11. FENTANYL [Concomitant]
     Indication: GENERAL ANAESTHESIA
     Dosage: 3 ?G/KG
  12. ROCURONIUM [Concomitant]
     Indication: NEUROMUSCULAR BLOCKADE
     Dosage: 0.3 MG/KG
  13. ONDANSETRON [Concomitant]
     Indication: PROPHYLAXIS OF NAUSEA AND VOMITING
     Dosage: 0.08 MG/KG

REACTIONS (6)
  - Exposure during pregnancy [None]
  - Premature separation of placenta [Recovered/Resolved]
  - Premature labour [Recovered/Resolved]
  - Vaginal haemorrhage [None]
  - Ventricular tachycardia [Recovered/Resolved]
  - Hypotension [Recovered/Resolved]
